FAERS Safety Report 24989731 (Version 1)
Quarter: 2025Q1

REPORT INFORMATION
  Report Type: Spontaneous
  Country: US (occurrence: None)
  Receive Date: 20250219
  Receipt Date: 20250219
  Transmission Date: 20250408
  Serious: Yes (unspecified)
  Sender: FDA-CTU
  Company Number: None

PATIENT
  Age: 36 Year
  Sex: Female

DRUGS (1)
  1. COPPER-CONTAINING INTRAUTERINE DEVICE (IUD) [Suspect]
     Active Substance: COPPER

REACTIONS (7)
  - Complication associated with device [None]
  - Medical device site odour [None]
  - Menstrual disorder [None]
  - Vaginal haemorrhage [None]
  - Metal poisoning [None]
  - Device interaction [None]
  - Medical device site inflammation [None]

NARRATIVE: CASE EVENT DATE: 20250219
